FAERS Safety Report 4715702-7 (Version None)
Quarter: 2005Q3

REPORT INFORMATION
  Report Type: 
  Country: None (occurrence: None)
  Receive Date: 20050718
  Receipt Date: 20050713
  Transmission Date: 20060218
  Serious: Yes (Life-Threatening)
  Sender: FDA-Public Use
  Company Number: US-BRISTOL-MYERS SQUIBB COMPANY-13038369

PATIENT
  Sex: Male

DRUGS (1)
  1. DEFINITY [Suspect]
     Route: 040
     Dates: start: 20050712, end: 20050712

REACTIONS (4)
  - BACK PAIN [None]
  - CARDIO-RESPIRATORY ARREST [None]
  - COMA [None]
  - CYANOSIS [None]
